FAERS Safety Report 7265321-6 (Version None)
Quarter: 2011Q1

REPORT INFORMATION
  Report Type: 
  Country: None (occurrence: None)
  Receive Date: 20110131
  Receipt Date: 20110125
  Transmission Date: 20110831
  Serious: No
  Sender: FDA-Public Use
  Company Number: US-JNJFOC-20110107223

PATIENT
  Sex: Female
  Weight: 68.04 kg

DRUGS (8)
  1. ASPIRIN [Concomitant]
     Indication: PROPHYLAXIS
     Route: 048
  2. METOPROLOL TARTRATE [Concomitant]
     Indication: HEART RATE INCREASED
     Route: 048
  3. FISH OIL [Concomitant]
     Indication: PROPHYLAXIS
     Route: 048
  4. FENTANYL-100 [Suspect]
     Indication: PAIN
     Route: 062
  5. SIMVASTATIN [Concomitant]
     Indication: BLOOD CHOLESTEROL ABNORMAL
     Route: 048
  6. VICODIN [Concomitant]
     Indication: BREAKTHROUGH PAIN
     Route: 048
  7. GABAPENTIN [Concomitant]
     Indication: NEUROPATHY PERIPHERAL
     Route: 048
  8. MULTIPLE VITAMIN [Concomitant]
     Indication: PROPHYLAXIS
     Route: 048

REACTIONS (5)
  - APPLICATION SITE RASH [None]
  - DRUG PRESCRIBING ERROR [None]
  - APPLICATION SITE IRRITATION [None]
  - WRONG TECHNIQUE IN DRUG USAGE PROCESS [None]
  - PRODUCT QUALITY ISSUE [None]
